FAERS Safety Report 7269656-2 (Version None)
Quarter: 2011Q1

REPORT INFORMATION
  Report Type: 
  Country: None (occurrence: None)
  Receive Date: 20110124
  Receipt Date: 20110105
  Transmission Date: 20110831
  Serious: No
  Sender: FDA-Public Use
  Company Number: 2011-00004

PATIENT
  Sex: Male

DRUGS (1)
  1. ZICAM COLD REMEDY RAPIDMELTS WITH VITAMIN C [Suspect]

REACTIONS (1)
  - AGEUSIA [None]
